FAERS Safety Report 15206653 (Version 1)
Quarter: 2018Q3

REPORT INFORMATION
  Report Type: Spontaneous
  Country: US (occurrence: US)
  Receive Date: 20180727
  Receipt Date: 20180727
  Transmission Date: 20181010
  Serious: No
  Sender: FDA-Public Use
  Company Number: US-PFIZER INC-2018299768

PATIENT
  Age: 60 Year
  Sex: Female

DRUGS (3)
  1. METHOTREXATE SODIUM. [Suspect]
     Active Substance: METHOTREXATE SODIUM
     Dosage: UNK, WEEKLY
  2. XELJANZ XR [Suspect]
     Active Substance: TOFACITINIB CITRATE
     Dosage: 11 MG, UNK
  3. RESTASIS [Suspect]
     Active Substance: CYCLOSPORINE
     Dosage: UNK

REACTIONS (6)
  - Submaxillary gland enlargement [Recovering/Resolving]
  - Swelling [Not Recovered/Not Resolved]
  - Inflammatory marker increased [Unknown]
  - Mycobacterium tuberculosis complex test positive [Unknown]
  - Musculoskeletal stiffness [Not Recovered/Not Resolved]
  - Arthralgia [Not Recovered/Not Resolved]
